APPROVED DRUG PRODUCT: TAGAMET
Active Ingredient: CIMETIDINE HYDROCHLORIDE
Strength: EQ 300MG BASE/2ML **Federal Register determination that product was not discontinued or withdrawn for safety or effectiveness reasons**
Dosage Form/Route: INJECTABLE;INJECTION
Application: N017939 | Product #002
Applicant: GLAXOSMITHKLINE
Approved: Approved Prior to Jan 1, 1982 | RLD: No | RS: No | Type: DISCN